FAERS Safety Report 19468783 (Version 1)
Quarter: 2021Q2

REPORT INFORMATION
  Report Type: Spontaneous
  Country: US (occurrence: US)
  Receive Date: 20210628
  Receipt Date: 20210628
  Transmission Date: 20210717
  Serious: No
  Sender: FDA-Public Use
  Company Number: US-PFIZER INC-2021581172

PATIENT
  Age: 62 Year
  Sex: Female

DRUGS (2)
  1. ABILIFY [Concomitant]
     Active Substance: ARIPIPRAZOLE
     Dosage: UNK, 1X/DAY (STARTED ABILIFY AT BEDTIME)
  2. XELJANZ [Suspect]
     Active Substance: TOFACITINIB CITRATE
     Indication: RHEUMATOID ARTHRITIS
     Dosage: 5 MG, 2X/DAY
     Route: 048
     Dates: start: 20210516

REACTIONS (4)
  - Myalgia [Unknown]
  - Musculoskeletal chest pain [Unknown]
  - Feeling abnormal [Unknown]
  - Arthralgia [Unknown]
